FAERS Safety Report 18494873 (Version 2)
Quarter: 2021Q1

REPORT INFORMATION
  Report Type: Spontaneous
  Country: JP (occurrence: JP)
  Receive Date: 20201112
  Receipt Date: 20210210
  Transmission Date: 20210419
  Serious: Yes (Other)
  Sender: FDA-Public Use
  Company Number: NVSJ2020JP011739

PATIENT
  Age: 40 Year
  Sex: Female

DRUGS (7)
  1. PREDONINE [Suspect]
     Active Substance: PREDNISOLONE
     Indication: RENAL AND PANCREAS TRANSPLANT
     Dosage: UNK
     Route: 065
  2. SIMULECT [Suspect]
     Active Substance: BASILIXIMAB
     Indication: RENAL AND PANCREAS TRANSPLANT
     Dosage: UNK
     Route: 041
  3. PROGRAF [Concomitant]
     Active Substance: TACROLIMUS
     Indication: RENAL AND PANCREAS TRANSPLANT
     Dosage: UNK
     Route: 065
  4. HEPARIN SODIUM. [Concomitant]
     Active Substance: HEPARIN SODIUM
     Indication: RENAL AND PANCREAS TRANSPLANT
     Dosage: UNK
     Route: 065
  5. GRACEPTOR [Suspect]
     Active Substance: TACROLIMUS
     Indication: RENAL AND PANCREAS TRANSPLANT
     Dosage: UNK
     Route: 065
  6. CELLCEPT [Suspect]
     Active Substance: MYCOPHENOLATE MOFETIL\MYCOPHENOLATE MOFETIL HYDROCHLORIDE
     Indication: RENAL AND PANCREAS TRANSPLANT
     Dosage: UNK
     Route: 065
  7. THYMOGLOBULINE [Concomitant]
     Active Substance: LAPINE T-LYMPHOCYTE IMMUNE GLOBULIN
     Indication: RENAL AND PANCREAS TRANSPLANT
     Dosage: UNK
     Route: 065

REACTIONS (9)
  - Febrile neutropenia [Unknown]
  - Viral infection [Unknown]
  - Bacterial infection [Unknown]
  - Product use in unapproved indication [Unknown]
  - Cytomegalovirus viraemia [Unknown]
  - Kidney transplant rejection [Unknown]
  - Post procedural haemorrhage [Unknown]
  - Suture related complication [Unknown]
  - Necrotising fasciitis [Unknown]
